FAERS Safety Report 5280592-3 (Version None)
Quarter: 2007Q1

REPORT INFORMATION
  Report Type: 
  Country: None (occurrence: None)
  Receive Date: 20070329
  Receipt Date: 20070326
  Transmission Date: 20070707
  Serious: Yes (Death)
  Sender: FDA-Public Use
  Company Number: US-SANOFI-SYNTHELABO-F03200700058

PATIENT
  Sex: Female

DRUGS (10)
  1. MELOXICAM [Concomitant]
     Dosage: UNK
     Route: 048
  2. EZETIMIBE [Concomitant]
     Route: 048
  3. VALSARTAN [Concomitant]
     Route: 048
  4. FLUOROURACIL [Suspect]
     Route: 042
     Dates: start: 20070216, end: 20070216
  5. BEVACIZUMAB [Suspect]
     Route: 042
     Dates: start: 20070213, end: 20070213
  6. ELOXATIN [Suspect]
     Indication: COLORECTAL CANCER METASTATIC
     Route: 042
     Dates: start: 20070213, end: 20070213
  7. FLONASE [Concomitant]
     Dosage: UNK
     Route: 045
  8. ASPIRIN [Concomitant]
     Dosage: UNK
     Route: 048
  9. NIACIN [Concomitant]
     Dosage: UNK
     Route: 065
  10. LEUCOVORIN CALCIUM [Suspect]
     Route: 042
     Dates: start: 20070213, end: 20070213

REACTIONS (1)
  - SUDDEN CARDIAC DEATH [None]
